FAERS Safety Report 24604564 (Version 1)
Quarter: 2024Q4

REPORT INFORMATION
  Report Type: Report from Study
  Country: ZA (occurrence: ZA)
  Receive Date: 20241111
  Receipt Date: 20241111
  Transmission Date: 20250115
  Serious: Yes (Death, Other)
  Sender: ALEXION PHARMACEUTICALS
  Company Number: ZA-AstraZeneca-CH-00743086A

PATIENT
  Age: 90 Year

DRUGS (28)
  1. DAPAGLIFLOZIN [Suspect]
     Active Substance: DAPAGLIFLOZIN
     Indication: Diabetes mellitus
  2. DAPAGLIFLOZIN [Suspect]
     Active Substance: DAPAGLIFLOZIN
  3. DAPAGLIFLOZIN [Suspect]
     Active Substance: DAPAGLIFLOZIN
  4. DAPAGLIFLOZIN [Suspect]
     Active Substance: DAPAGLIFLOZIN
  5. QUERO XR [Concomitant]
  6. QUERO XR [Concomitant]
  7. QUERO XR [Concomitant]
  8. QUERO XR [Concomitant]
  9. PANTOCID [Concomitant]
     Indication: Ulcer
  10. PANTOCID [Concomitant]
  11. PANTOCID [Concomitant]
  12. PANTOCID [Concomitant]
  13. SPIRACTIN [Concomitant]
     Indication: Hypertension
  14. SPIRACTIN [Concomitant]
  15. SPIRACTIN [Concomitant]
  16. SPIRACTIN [Concomitant]
  17. LIPOGEN [Concomitant]
     Indication: Blood cholesterol
     Dosage: 20 MILLILITRE PER KILOGRAM
  18. LIPOGEN [Concomitant]
     Dosage: 20 MILLILITRE PER KILOGRAM
  19. LIPOGEN [Concomitant]
     Dosage: 20 MILLILITRE PER KILOGRAM
  20. LIPOGEN [Concomitant]
     Dosage: 20 MILLILITRE PER KILOGRAM
  21. FUROSEMIDE [Concomitant]
     Active Substance: FUROSEMIDE
     Indication: Hypertension
  22. FUROSEMIDE [Concomitant]
     Active Substance: FUROSEMIDE
  23. FUROSEMIDE [Concomitant]
     Active Substance: FUROSEMIDE
  24. FUROSEMIDE [Concomitant]
     Active Substance: FUROSEMIDE
  25. POTASSIUM CHLORIDE [Concomitant]
     Active Substance: POTASSIUM CHLORIDE
     Indication: Hypokalaemia
     Dosage: 600 MILLIGRAM
  26. POTASSIUM CHLORIDE [Concomitant]
     Active Substance: POTASSIUM CHLORIDE
     Dosage: 600 MILLIGRAM
  27. POTASSIUM CHLORIDE [Concomitant]
     Active Substance: POTASSIUM CHLORIDE
     Dosage: 600 MILLIGRAM
  28. POTASSIUM CHLORIDE [Concomitant]
     Active Substance: POTASSIUM CHLORIDE
     Dosage: 600 MILLIGRAM

REACTIONS (1)
  - Death [Fatal]
